FAERS Safety Report 5081079-3 (Version None)
Quarter: 2006Q3

REPORT INFORMATION
  Report Type: 
  Country: None (occurrence: None)
  Receive Date: 20060810
  Receipt Date: 20060731
  Transmission Date: 20061208
  Serious: Yes (Hospitalization, Disabling, Other)
  Sender: FDA-Public Use
  Company Number: 2005-11-1267

PATIENT
  Age: 54 Year
  Sex: Female
  Weight: 83.9154 kg

DRUGS (11)
  1. PEG-INTRON [Suspect]
     Indication: HEPATITIS C
     Dates: start: 20050614
  2. REBETOL [Suspect]
     Indication: HEPATITIS C
     Dosage: ORAL
     Route: 048
     Dates: start: 20050614
  3. FLONASE                         NASAL AEROSOL 50 MCG INHALATION [Concomitant]
  4. SOMA [Concomitant]
  5. OXYCONTIN (OXYCODONE HCL) SUSTAINED RELEASE [Concomitant]
  6. ADVAIR (SALMETEROL/FLUTICASONE) POWDER AEROSOL [Concomitant]
  7. LISINOPRIL [Concomitant]
  8. PREVACID CAPSULES 30 MG DELAYED [Concomitant]
  9. NORCO (HYDROCDONE BITATRATE) TABLETS [Concomitant]
  10. ALBUTEROL SULFATE AEROSOL SOLUTION 108 MCG/ACT INHALATION [Concomitant]
  11. SINGULAIR [Concomitant]

REACTIONS (32)
  - ALOPECIA [None]
  - ARTHRALGIA [None]
  - ASTHMA [None]
  - BLOOD CALCIUM DECREASED [None]
  - BLOOD GLUCOSE INCREASED [None]
  - BRONCHITIS [None]
  - DEHYDRATION [None]
  - DEPRESSED LEVEL OF CONSCIOUSNESS [None]
  - DEPRESSION [None]
  - DIVERTICULITIS [None]
  - DRUG INEFFECTIVE [None]
  - FATIGUE [None]
  - FEELING HOT [None]
  - GASTROENTERITIS VIRAL [None]
  - HAEMATOCRIT DECREASED [None]
  - HAEMOGLOBIN DECREASED [None]
  - HAEMOPHILUS INFECTION [None]
  - HYPERVENTILATION [None]
  - IMPAIRED WORK ABILITY [None]
  - IRRITABILITY [None]
  - NEUTROPHIL COUNT DECREASED [None]
  - PAIN IN EXTREMITY [None]
  - PANCREATITIS [None]
  - PHARYNGOLARYNGEAL PAIN [None]
  - PLEURISY [None]
  - PROTEIN URINE [None]
  - RECTAL HAEMORRHAGE [None]
  - SYSTEMIC LUPUS ERYTHEMATOSUS [None]
  - UPPER RESPIRATORY TRACT INFECTION [None]
  - VIRAL INFECTION [None]
  - WEIGHT DECREASED [None]
  - WHITE BLOOD CELL COUNT DECREASED [None]
